FAERS Safety Report 7207472-8 (Version None)
Quarter: 2011Q1

REPORT INFORMATION
  Report Type: 
  Country: None (occurrence: None)
  Receive Date: 20110103
  Receipt Date: 20101222
  Transmission Date: 20110831
  Serious: No
  Sender: FDA-Public Use
  Company Number: US-PFIZER INC-2010177624

PATIENT
  Sex: Female
  Weight: 47.619 kg

DRUGS (6)
  1. NICOTINAMIDE [Concomitant]
     Indication: MOOD ALTERED
     Dosage: UNK
  2. FOLIC ACID [Concomitant]
     Indication: MOOD ALTERED
     Dosage: UNK
  3. ASCORBIC ACID [Concomitant]
     Indication: MOOD ALTERED
     Dosage: UNK
  4. LOVAZA [Concomitant]
     Indication: MOOD ALTERED
     Dosage: UNK
  5. NEURONTIN [Suspect]
     Indication: ANXIETY
     Dosage: 100 MG, AS NEEDED
     Dates: start: 20101220, end: 20101222
  6. NEURONTIN [Suspect]
     Indication: INSOMNIA

REACTIONS (12)
  - INSOMNIA [None]
  - ANGER [None]
  - DEPRESSION [None]
  - ABDOMINAL DISCOMFORT [None]
  - SWELLING FACE [None]
  - GASTROINTESTINAL DISORDER [None]
  - IRRITABILITY [None]
  - DRUG INEFFECTIVE [None]
  - VISION BLURRED [None]
  - ASTHENIA [None]
  - ANXIETY [None]
  - AMNESIA [None]
